FAERS Safety Report 8152156-5 (Version None)
Quarter: 2012Q1

REPORT INFORMATION
  Report Type: 
  Country: None (occurrence: None)
  Receive Date: 20120214
  Receipt Date: 20120203
  Transmission Date: 20120608
  Serious: Yes (Hospitalization)
  Sender: FDA-Public Use
  Company Number: VISP-NO-1202S-0045

PATIENT
  Age: 49 Year
  Sex: Male

DRUGS (1)
  1. VISIPAQUE [Suspect]
     Indication: PRODUCT USED FOR UNKNOWN INDICATION
     Dosage: 130 ML, SINGLE DOSE, INTRAVENOUS
     Route: 042
     Dates: start: 20120126, end: 20120126

REACTIONS (5)
  - PULSE ABSENT [None]
  - CYANOSIS [None]
  - LOSS OF CONSCIOUSNESS [None]
  - VOMITING [None]
  - CARDIO-RESPIRATORY ARREST [None]
